FAERS Safety Report 23968724 (Version 3)
Quarter: 2024Q3

REPORT INFORMATION
  Report Type: Spontaneous
  Country: US (occurrence: US)
  Receive Date: 20240612
  Receipt Date: 20240821
  Transmission Date: 20241016
  Serious: No
  Sender: CALLIDITAS THERAPEUTICS
  Company Number: US-Calliditas-2024CAL00924

PATIENT
  Age: 64 Year
  Sex: Male
  Weight: 112.2 kg

DRUGS (7)
  1. TARPEYO [Suspect]
     Active Substance: BUDESONIDE
     Indication: IgA nephropathy
     Route: 048
     Dates: start: 20240411
  2. VITAMINS [Concomitant]
     Active Substance: VITAMINS
  3. MAGNESIUM [Concomitant]
     Active Substance: MAGNESIUM
  4. ASPIRIN [Concomitant]
     Active Substance: ASPIRIN
  5. CHLORTHALIDONE [Concomitant]
     Active Substance: CHLORTHALIDONE
  6. PERINDOPRIL [Concomitant]
     Active Substance: PERINDOPRIL
  7. TADALAFIL [Concomitant]
     Active Substance: TADALAFIL

REACTIONS (7)
  - Fall [Recovered/Resolved]
  - Back pain [Recovered/Resolved]
  - Skin fragility [Not Recovered/Not Resolved]
  - Muscle spasms [Not Recovered/Not Resolved]
  - Weight decreased [Unknown]
  - Chromaturia [Recovering/Resolving]
  - Sensitive skin [Unknown]

NARRATIVE: CASE EVENT DATE: 20240515
